FAERS Safety Report 15362964 (Version 1)
Quarter: 2018Q3

REPORT INFORMATION
  Report Type: Spontaneous
  Country: US (occurrence: US)
  Receive Date: 20180831
  Receipt Date: 20180831
  Transmission Date: 20181010
  Serious: Yes (Other)
  Sender: FDA-Public Use
  Company Number: None

PATIENT
  Age: 81 Year
  Sex: Female
  Weight: 60.78 kg

DRUGS (3)
  1. RECLAST [Suspect]
     Active Substance: ZOLEDRONIC ACID
     Indication: OSTEOPENIA
     Dosage: 5MG/100ML ONCE IV INFUSION; 18?JUN?2018, 30?MAR?2017, 23?APR?2015
     Route: 042
     Dates: start: 20180618
  2. RECLAST [Suspect]
     Active Substance: ZOLEDRONIC ACID
     Indication: HYPERPARATHYROIDISM
     Dosage: 5MG/100ML ONCE IV INFUSION; 18?JUN?2018, 30?MAR?2017, 23?APR?2015
     Route: 042
     Dates: start: 20180618
  3. RECLAST [Suspect]
     Active Substance: ZOLEDRONIC ACID
     Dates: start: 20170330, end: 20170423

REACTIONS (1)
  - Pain in extremity [None]

NARRATIVE: CASE EVENT DATE: 20180831
